FAERS Safety Report 7501306-X (Version None)
Quarter: 2011Q2

REPORT INFORMATION
  Report Type: 
  Country: None (occurrence: None)
  Receive Date: 20110524
  Receipt Date: 20110510
  Transmission Date: 20111010
  Serious: Yes (Other)
  Sender: FDA-Public Use
  Company Number: US-JNJFOC-20110504902

PATIENT
  Sex: Female
  Weight: 140.62 kg

DRUGS (1)
  1. REMICADE [Suspect]
     Indication: CROHN'S DISEASE
     Route: 042
     Dates: start: 20110125

REACTIONS (3)
  - DRUG INEFFECTIVE [None]
  - CATARACT [None]
  - CROHN'S DISEASE [None]
